FAERS Safety Report 8609826 (Version 3)
Quarter: 2012Q4

REPORT INFORMATION
  Report Type: 
  Country: US (occurrence: US)
  Receive Date: 20120612
  Receipt Date: 20121205
  Transmission Date: 20130627
  Serious: Yes (Other)
  Sender: FDA-Public Use
  Company Number: US-PFIZER INC-2012138084

PATIENT
  Age: 69 Year
  Sex: Female
  Weight: 56.24 kg

DRUGS (3)
  1. CENTRUM SILVER [Suspect]
     Indication: SUPPLEMENTATION THERAPY
     Dosage: UNK, daily
     Dates: end: 20121015
  2. PREMARIN [Suspect]
     Dosage: 1.25 mg, UNK
  3. QUINAPRIL HYDROCHLORIDE [Concomitant]
     Indication: BLOOD PRESSURE ABNORMAL
     Dosage: 40 mg, 2x/day

REACTIONS (3)
  - Coeliac disease [Not Recovered/Not Resolved]
  - Malaise [Recovered/Resolved]
  - Nausea [Recovered/Resolved]
